FAERS Safety Report 7399017-7 (Version None)
Quarter: 2011Q1

REPORT INFORMATION
  Report Type: 
  Country: None (occurrence: None)
  Receive Date: 20110328
  Receipt Date: 20110311
  Transmission Date: 20110831
  Serious: Yes (Other)
  Sender: FDA-Public Use
  Company Number: 017725

PATIENT
  Sex: Male
  Weight: 118 kg

DRUGS (2)
  1. CIMZIA [Suspect]
     Indication: CROHN'S DISEASE
     Dosage: (200 MG 1X/4 WEEKS SUBCUTANEOUS) ; (SUBCUTANEOUS) ; (SUBCUTANEOUS)
     Route: 058
     Dates: end: 20110303
  2. CIMZIA [Suspect]
     Indication: CROHN'S DISEASE
     Dosage: (200 MG 1X/4 WEEKS SUBCUTANEOUS) ; (SUBCUTANEOUS) ; (SUBCUTANEOUS)
     Route: 058
     Dates: start: 20081020

REACTIONS (5)
  - HYPONATRAEMIA [None]
  - DIARRHOEA [None]
  - URINARY TRACT INFECTION [None]
  - CYSTITIS [None]
  - ABSCESS LIMB [None]
